FAERS Safety Report 11147421 (Version 1)
Quarter: 2015Q2

REPORT INFORMATION
  Report Type: Report from Study
  Country: PE (occurrence: PE)
  Receive Date: 20150529
  Receipt Date: 20150529
  Transmission Date: 20150821
  Serious: Yes (Hospitalization)
  Sender: FDA-Public Use
  Company Number: PE-ROCHE-1584991

PATIENT
  Sex: Male

DRUGS (1)
  1. MABTHERA [Suspect]
     Active Substance: RITUXIMAB
     Indication: LYMPHOMA
     Route: 042
     Dates: start: 20141222, end: 20150511

REACTIONS (4)
  - Seizure [Recovered/Resolved]
  - Weight decreased [Recovered/Resolved]
  - Injury [Unknown]
  - Syncope [Recovered/Resolved]
